FAERS Safety Report 7212045-7 (Version None)
Quarter: 2010Q4

REPORT INFORMATION
  Report Type: 
  Country: None (occurrence: None)
  Receive Date: 20101229
  Receipt Date: 20101217
  Transmission Date: 20110411
  Serious: Yes (Other)
  Sender: FDA-Public Use
  Company Number: 2010-3673

PATIENT
  Age: 71 Year
  Sex: Male
  Weight: 92 kg

DRUGS (9)
  1. SOMATULINE DEPOT [Suspect]
     Indication: ACROMEGALY
     Dosage: 120 MG ONCE EVERY 28 DAYS (120 MG, 1 IN 28 D), SUBCUTANEOUS
     Route: 058
     Dates: start: 20101022
  2. LEXAPRO [Concomitant]
  3. VITAMIN D [Concomitant]
  4. VITAMIN B12 [Concomitant]
  5. ASPIRIN [Concomitant]
  6. PREVACID [Concomitant]
  7. AVANDAMET [Concomitant]
  8. CARDIZEM [Concomitant]
  9. SYNTHROID [Concomitant]

REACTIONS (6)
  - AGEUSIA [None]
  - ARTHRALGIA [None]
  - DELUSION [None]
  - DIARRHOEA [None]
  - HEADACHE [None]
  - URINARY TRACT INFECTION [None]
